FAERS Safety Report 5477070-5 (Version None)
Quarter: 2007Q4

REPORT INFORMATION
  Report Type: 
  Country: None (occurrence: None)
  Receive Date: 20071002
  Receipt Date: 20071002
  Transmission Date: 20080405
  Serious: Yes (Hospitalization)
  Sender: FDA-Public Use
  Company Number: None

PATIENT
  Age: 48 Year
  Sex: Male
  Weight: 90.7194 kg

DRUGS (1)
  1. ARIPIPRAZOLE [Suspect]
     Indication: PSYCHOTIC DISORDER
     Dosage: 15MG EVERY DAY PO
     Route: 048
     Dates: start: 20070810, end: 20070824

REACTIONS (2)
  - ANGIOEDEMA [None]
  - THROAT TIGHTNESS [None]
